FAERS Safety Report 18893331 (Version 3)
Quarter: 2021Q2

REPORT INFORMATION
  Report Type: Spontaneous
  Country: CA (occurrence: CA)
  Receive Date: 20210215
  Receipt Date: 20210422
  Transmission Date: 20210717
  Serious: Yes (Disabling, Other)
  Sender: FDA-Public Use
  Company Number: CA-ORION CORPORATION ORION PHARMA-21_00013155

PATIENT
  Age: 26 Year
  Sex: Male
  Weight: 72.7 kg

DRUGS (2)
  1. METHOTREXATE (TRADE NAME UNKNOWN) [Suspect]
     Active Substance: METHOTREXATE
     Indication: CROHN^S DISEASE
     Route: 065
  2. INFLECTRA [Concomitant]
     Active Substance: INFLIXIMAB-DYYB
     Dosage: 0,2,6 THEN EVERY 8 WEEKS
     Route: 042
     Dates: start: 20210225, end: 20210225

REACTIONS (3)
  - Crohn^s disease [Unknown]
  - Product use in unapproved indication [Unknown]
  - Suspected COVID-19 [Unknown]
